FAERS Safety Report 12799966 (Version 4)
Quarter: 2016Q4

REPORT INFORMATION
  Report Type: Spontaneous
  Country: US (occurrence: US)
  Receive Date: 20160930
  Receipt Date: 20161028
  Transmission Date: 20170207
  Serious: Yes (Hospitalization)
  Sender: FDA-Public Use
  Company Number: US-ALKERMES INC.-ALK-2016-002506

PATIENT
  Age: 24 Year
  Sex: Male
  Weight: 98.87 kg

DRUGS (1)
  1. ARISTADA [Suspect]
     Active Substance: ARIPIPRAZOLE LAUROXIL
     Indication: SCHIZOPHRENIA
     Dosage: 882 MG, Q4WK
     Route: 030

REACTIONS (4)
  - Schizoaffective disorder bipolar type [Not Recovered/Not Resolved]
  - Delusional disorder, unspecified type [Not Recovered/Not Resolved]
  - Aggression [Not Recovered/Not Resolved]
  - Drug dose omission [Not Recovered/Not Resolved]
